FAERS Safety Report 24691130 (Version 2)
Quarter: 2024Q4

REPORT INFORMATION
  Report Type: Spontaneous
  Country: GB (occurrence: GB)
  Receive Date: 20241203
  Receipt Date: 20241205
  Transmission Date: 20250114
  Serious: Yes (Hospitalization)
  Sender: MYLAN
  Company Number: GB-MYLANLABS-2024M1106925

PATIENT
  Sex: Male

DRUGS (2)
  1. CLOZARIL [Suspect]
     Active Substance: CLOZAPINE
     Indication: Schizophrenia
     Dosage: UNK (COMMENCEMENT DATE REPORTED: 27-NOV-2024)
     Route: 065
  2. CLOZARIL [Suspect]
     Active Substance: CLOZAPINE
     Indication: Bipolar disorder
     Dosage: UNK
     Route: 048
     Dates: start: 20130709, end: 202411

REACTIONS (3)
  - Critical illness [Unknown]
  - Chest pain [Unknown]
  - Off label use [Unknown]
